FAERS Safety Report 8488339-4 (Version None)
Quarter: 2012Q3

REPORT INFORMATION
  Report Type: 
  Country: None (occurrence: None)
  Receive Date: 20120705
  Receipt Date: 20120627
  Transmission Date: 20120928
  Serious: Yes (Other)
  Sender: FDA-Public Use
  Company Number: DE-UCBSA-060746

PATIENT
  Age: 37 Year
  Sex: Female
  Weight: 90 kg

DRUGS (8)
  1. ZOPICLON [Suspect]
     Dosage: 19 TABLETS
     Dates: start: 20120601, end: 20120601
  2. KEPPRA [Suspect]
     Dosage: 250 MG TAB, 8 TABLETS, TOTAL AMOUNT: 2,000MG
     Dates: start: 20120601, end: 20120601
  3. LEVETIRACETAM [Suspect]
     Dosage: 500, 40 TABLETS, TOTAL AMOUNT: 20,000 MG
     Dates: start: 20120601, end: 20120601
  4. OPIPRAMOL [Suspect]
     Dosage: 86 TABLETS, UNKNOWN AMOUNT
     Dates: start: 20120601, end: 20120601
  5. LORAZEPAM [Suspect]
     Dosage: 60 TABLETS
     Dates: start: 20120601, end: 20120601
  6. DOXYLAMINE SUCCINATE [Suspect]
     Dosage: 25, 20 TABLETS, TOTAL AMOUNT: 500MG
     Dates: start: 20120601, end: 20120601
  7. LEVETIRACETAM [Suspect]
     Dosage: 750, 40 TABLETS, TOTAL AMOUNT: 30,000 MG
     Dates: start: 20120601, end: 20120601
  8. ASPIRIN [Suspect]
     Dosage: 31 TABLETS
     Dates: start: 20120601, end: 20120601

REACTIONS (5)
  - MULTIPLE DRUG OVERDOSE [None]
  - COMA [None]
  - SUICIDE ATTEMPT [None]
  - TACHYCARDIA [None]
  - ILEUS PARALYTIC [None]
